FAERS Safety Report 5581542-2 (Version None)
Quarter: 2008Q1

REPORT INFORMATION
  Report Type: 
  Country: None (occurrence: None)
  Receive Date: 20080102
  Receipt Date: 20080102
  Transmission Date: 20080703
  Serious: Yes (Life-Threatening)
  Sender: FDA-Public Use
  Company Number: None

PATIENT
  Age: 61 Year
  Sex: Female
  Weight: 96.1626 kg

DRUGS (2)
  1. CHANTIX [Suspect]
     Indication: SMOKING CESSATION THERAPY
     Dosage: 1@DAY
     Dates: start: 20071007, end: 20071012
  2. CHANTIX [Suspect]
     Indication: SMOKING CESSATION THERAPY
     Dosage: 2@DAY
     Dates: start: 20071012, end: 20071226

REACTIONS (4)
  - ABNORMAL DREAMS [None]
  - DEPRESSED MOOD [None]
  - SLEEP DISORDER [None]
  - SUICIDAL IDEATION [None]
